FAERS Safety Report 15497786 (Version 1)
Quarter: 2018Q4

REPORT INFORMATION
  Report Type: Spontaneous
  Country: FR (occurrence: FR)
  Receive Date: 20181015
  Receipt Date: 20181015
  Transmission Date: 20190205
  Serious: Yes (Other)
  Sender: FDA-Public Use
  Company Number: FR-AUROBINDO-AUR-APL-2018-050361

PATIENT
  Age: 21 Year
  Sex: Male

DRUGS (5)
  1. CANNABIS [Suspect]
     Active Substance: CANNABIS SATIVA SUBSP. INDICA TOP
     Indication: PRODUCT USED FOR UNKNOWN INDICATION
     Dosage: 10 JOINTS/JOUR
     Route: 065
  2. CAFFEINE. [Suspect]
     Active Substance: CAFFEINE
     Indication: DRUG ABUSE
     Dosage: NON RENSEIGN?E
     Route: 045
     Dates: start: 20171205, end: 20171205
  3. CAFFEINE. [Suspect]
     Active Substance: CAFFEINE
     Dosage: NON RENSEIGN?E
     Route: 042
     Dates: start: 20171205, end: 20171205
  4. PARACETAMOL [Suspect]
     Active Substance: ACETAMINOPHEN
     Indication: PRODUCT USED FOR UNKNOWN INDICATION
     Dosage: NON RENSEIGN?E
     Route: 042
     Dates: start: 20171205, end: 20171205
  5. PARACETAMOL [Suspect]
     Active Substance: ACETAMINOPHEN
     Dosage: NON RENSEIGN?E
     Route: 045
     Dates: start: 20171205, end: 20171205

REACTIONS (1)
  - Drug abuse [Not Recovered/Not Resolved]
